FAERS Safety Report 7051864-7 (Version None)
Quarter: 2010Q4

REPORT INFORMATION
  Report Type: 
  Country: None (occurrence: None)
  Receive Date: 20101019
  Receipt Date: 20101012
  Transmission Date: 20110411
  Serious: Yes (Other)
  Sender: FDA-Public Use
  Company Number: US-SANOFI-AVENTIS-2010SA054482

PATIENT
  Age: 63 Year
  Sex: Female
  Weight: 87.09 kg

DRUGS (41)
  1. LANTUS [Suspect]
     Indication: TYPE 2 DIABETES MELLITUS
     Dosage: DOSE:18 UNIT(S)
     Route: 058
     Dates: start: 20100601
  2. LANTUS [Suspect]
     Indication: BLOOD GLUCOSE INCREASED
     Dosage: DOSE:18 UNIT(S)
     Route: 058
     Dates: start: 20100601
  3. LANTUS [Suspect]
     Dosage: DOSE:18 UNIT(S)
     Route: 058
     Dates: start: 20100601
  4. LANTUS [Suspect]
     Dosage: DOSE:16 UNIT(S)
     Route: 058
  5. LANTUS [Suspect]
     Dosage: DOSE:16 UNIT(S)
     Route: 058
  6. LANTUS [Suspect]
     Dosage: DOSE:16 UNIT(S)
     Route: 058
  7. LANTUS [Suspect]
     Dosage: 15 UNITS AM AND PM DOSE:15 UNIT(S)
     Route: 058
  8. LANTUS [Suspect]
     Dosage: 15 UNITS AM AND PM DOSE:15 UNIT(S)
     Route: 058
  9. LANTUS [Suspect]
     Dosage: 15 UNITS AM AND PM DOSE:15 UNIT(S)
     Route: 058
  10. LANTUS [Suspect]
     Dosage: DOSE:13 UNIT(S)
     Route: 058
  11. LANTUS [Suspect]
     Dosage: DOSE:13 UNIT(S)
     Route: 058
  12. LANTUS [Suspect]
     Dosage: DOSE:13 UNIT(S)
     Route: 058
  13. LANTUS [Suspect]
     Dosage: DOSE:13 UNIT(S)
     Route: 058
  14. LANTUS [Suspect]
     Dosage: DOSE:13 UNIT(S)
     Route: 058
  15. LANTUS [Suspect]
     Dosage: DOSE:13 UNIT(S)
     Route: 058
  16. SOLOSTAR [Suspect]
     Indication: TYPE 2 DIABETES MELLITUS
     Dates: start: 20100601
  17. SOLOSTAR [Suspect]
     Indication: BLOOD GLUCOSE INCREASED
     Dates: start: 20100601
  18. SOLOSTAR [Suspect]
     Dates: start: 20100601
  19. SOLOSTAR [Suspect]
     Dates: start: 20100601
  20. SOLOSTAR [Suspect]
     Dates: start: 20100601
  21. SOLOSTAR [Suspect]
     Dates: start: 20100601
  22. BYETTA [Suspect]
     Indication: BLOOD GLUCOSE INCREASED
     Dosage: 2 P/DAY 10 MCG, 5 MCG
     Dates: start: 20100708, end: 20101001
  23. ACTOS [Concomitant]
     Dates: start: 20050101, end: 20100925
  24. COUMADIN [Concomitant]
     Dosage: 2.5 MG TO 7.5 MG PER DAY
     Dates: start: 20100708
  25. LISINOPRIL [Concomitant]
     Dosage: 1 P/DAY
     Dates: start: 20070101
  26. FEXOFENADINE HCL [Concomitant]
     Indication: SEASONAL ALLERGY
     Dosage: 1 P/DAY
     Dates: start: 20070101
  27. FEXOFENADINE HCL [Concomitant]
     Dosage: 1 P/DAY
     Dates: start: 20070101
  28. LEVOTHYROXINE [Concomitant]
     Indication: THYROID DISORDER
     Dosage: 1P/DAY
  29. RESTASIS [Concomitant]
     Dosage: 2 DROPS PER DAY EACH EYE
  30. COREG [Concomitant]
     Dates: start: 20100708
  31. SPIRONOLACTONE [Concomitant]
     Indication: DIURETIC THERAPY
     Dosage: TAKE ONE ON M, W, F
  32. ASPIRIN [Concomitant]
  33. METAMUCIL-2 [Concomitant]
     Dosage: 2 CAPS PER DAY
  34. IRON [Concomitant]
     Dosage: TAKE 1 M W F
  35. VITAMIN D [Concomitant]
     Dosage: 1 GEL PER DAY
  36. ALL OTHER THERAPEUTIC PRODUCTS [Concomitant]
     Dosage: 1 PER DAY
  37. CALCIUM CITRATE [Concomitant]
     Dosage: 100. 600, 667 4 PER DAY
  38. ASCORBIC ACID [Concomitant]
  39. LECITHIN [Concomitant]
  40. ASPERGILLUS ORIZAE ENZYME/PANCREATIN [Concomitant]
     Dosage: 1 DAY
  41. ALL OTHER THERAPEUTIC PRODUCTS [Concomitant]
     Dosage: 1 CAP PER DAY

REACTIONS (6)
  - ATRIAL FIBRILLATION [None]
  - CONTUSION [None]
  - EYE MOVEMENT DISORDER [None]
  - HYPOGLYCAEMIC UNCONSCIOUSNESS [None]
  - MUSCLE SPASMS [None]
  - NAUSEA [None]
